FAERS Safety Report 15083215 (Version 1)
Quarter: 2018Q2

REPORT INFORMATION
  Report Type: Spontaneous
  Country: DE (occurrence: DE)
  Receive Date: 20180628
  Receipt Date: 20180628
  Transmission Date: 20180711
  Serious: Yes (Disabling)
  Sender: FDA-Public Use
  Company Number: DE-TAKEDA-2018TUS020799

PATIENT
  Age: 44 Year
  Sex: Male

DRUGS (2)
  1. CLAVERSAL [Concomitant]
     Active Substance: MESALAMINE
     Dosage: 1.5 G, UNK
  2. ENTYVIO [Suspect]
     Active Substance: VEDOLIZUMAB
     Indication: COLITIS ULCERATIVE
     Dosage: UNK
     Route: 065
     Dates: start: 201803

REACTIONS (1)
  - Paraesthesia [Unknown]
